FAERS Safety Report 21878655 (Version 2)
Quarter: 2023Q1

REPORT INFORMATION
  Report Type: Report from Study
  Country: AT (occurrence: AT)
  Receive Date: 20230118
  Receipt Date: 20230120
  Transmission Date: 20230418
  Serious: Yes (Death, Other)
  Sender: FDA-Public Use
  Company Number: AT-PFIZER INC-202300022114

PATIENT
  Age: 15 Year
  Sex: Female

DRUGS (9)
  1. METHOTREXATE SODIUM [Suspect]
     Active Substance: METHOTREXATE SODIUM
     Indication: Osteosarcoma
     Dosage: 12 G/M2/CY (14 CYCLES)
     Route: 042
  2. VINCRISTINE SULFATE [Suspect]
     Active Substance: VINCRISTINE SULFATE
     Indication: Osteosarcoma
     Dosage: 1.5 MG/M2, CYCLIC
  3. LEUCOVORIN CALCIUM [Suspect]
     Active Substance: LEUCOVORIN CALCIUM
     Indication: Osteosarcoma
     Dosage: 18 G/M2, CYCLIC
  4. ADRIAMYCIN [Suspect]
     Active Substance: DOXORUBICIN HYDROCHLORIDE
     Indication: Osteosarcoma
     Dosage: 90 MG/M2, CYCLIC
  5. BLEOMYCIN [Suspect]
     Active Substance: BLEOMYCIN SULFATE
     Indication: Osteosarcoma
     Dosage: 15 MG/M2, DAILY (X 2 DAYS)
  6. CYCLOPHOSPHAMIDE [Suspect]
     Active Substance: CYCLOPHOSPHAMIDE
     Indication: Osteosarcoma
     Dosage: 600 MG/M2, DAILY (X 2 DAYS)
  7. DACTINOMYCIN [Suspect]
     Active Substance: DACTINOMYCIN
     Indication: Osteosarcoma
     Dosage: 600 MCG/M2/DAY X 2 DAYS
  8. IFOSFAMIDE [Suspect]
     Active Substance: IFOSFAMIDE
     Indication: Osteosarcoma
     Dosage: 2 G/M2/DAY X 5 DAYS
  9. CISPLATIN [Suspect]
     Active Substance: CISPLATIN
     Indication: Osteosarcoma
     Dosage: 90 MG/M2, CYCLIC

REACTIONS (2)
  - Hepatic failure [Fatal]
  - Neurotoxicity [Fatal]
